FAERS Safety Report 9852642 (Version 1)
Quarter: 2014Q1

REPORT INFORMATION
  Report Type: Spontaneous
  Country: GB (occurrence: None)
  Receive Date: 20140127
  Receipt Date: 20140127
  Transmission Date: 20141002
  Serious: No
  Sender: FDA-Public Use
  Company Number: 2014R1-77304

PATIENT
  Sex: Male
  Weight: 75 kg

DRUGS (1)
  1. NAPROXEN (NAPROXEN) [Suspect]
     Indication: BACK PAIN
     Route: 048
     Dates: start: 20130205, end: 20130219

REACTIONS (1)
  - Palpitations [None]
